FAERS Safety Report 17676862 (Version 4)
Quarter: 2020Q3

REPORT INFORMATION
  Report Type: Spontaneous
  Country: US (occurrence: US)
  Receive Date: 20200416
  Receipt Date: 20200713
  Transmission Date: 20201102
  Serious: Yes (Hospitalization)
  Sender: FDA-Public Use
  Company Number: US-NOVOPROD-722968

PATIENT
  Age: 63 Year
  Sex: Male

DRUGS (1)
  1. OZEMPIC [Suspect]
     Active Substance: SEMAGLUTIDE
     Indication: TYPE 2 DIABETES MELLITUS
     Dosage: 1 MG, QW (2 DOSE OF 0.5MG QW)
     Route: 058
     Dates: start: 2019, end: 2020

REACTIONS (7)
  - Ear pain [Recovered/Resolved]
  - Sinus disorder [Not Recovered/Not Resolved]
  - Escherichia infection [Recovered/Resolved]
  - Abdominal pain upper [Not Recovered/Not Resolved]
  - Sepsis [Recovered/Resolved]
  - Pancreatitis [Recovered/Resolved]
  - Diarrhoea [Recovered/Resolved]

NARRATIVE: CASE EVENT DATE: 2020
